FAERS Safety Report 18672832 (Version 1)
Quarter: 2020Q4

REPORT INFORMATION
  Report Type: Report from Study
  Country: BE (occurrence: BE)
  Receive Date: 20201228
  Receipt Date: 20201228
  Transmission Date: 20210114
  Serious: Yes (Hospitalization, Other)
  Sender: FDA-Public Use
  Company Number: BE-MYLANLABS-2020M1103597

PATIENT
  Age: 61 Year
  Sex: Male
  Weight: 81 kg

DRUGS (43)
  1. CARBOPLATIN. [Suspect]
     Active Substance: CARBOPLATIN
     Indication: NON-SMALL CELL LUNG CANCER
     Dosage: UNK
     Route: 065
     Dates: start: 20200317
  2. ATEZOLIZUMAB. [Suspect]
     Active Substance: ATEZOLIZUMAB
     Indication: NON-SMALL CELL LUNG CANCER
     Dosage: SUBSEQUENT INFUSION ON 17/MAR/2020
     Route: 041
     Dates: start: 20200406
  3. ATEZOLIZUMAB. [Suspect]
     Active Substance: ATEZOLIZUMAB
     Dosage: SUBSEQUENT INFUSION ON 17/MAR/2020
     Route: 041
     Dates: start: 20200728
  4. PALONOSETRON. [Concomitant]
     Active Substance: PALONOSETRON HYDROCHLORIDE
     Dosage: 0.5 MILLIGRAM
     Dates: start: 20200406, end: 20200406
  5. ROSUVASTATIN. [Concomitant]
     Active Substance: ROSUVASTATIN
     Indication: DYSLIPIDAEMIA
     Dosage: 30 MILLIGRAM, QD
     Dates: start: 20191112
  6. ADENURIC [Concomitant]
     Active Substance: FEBUXOSTAT
     Indication: PROPHYLAXIS
     Dosage: 120 MILLIGRAM, QD
     Dates: start: 2010
  7. GABAPENTIN. [Concomitant]
     Active Substance: GABAPENTIN
     Indication: POLYNEUROPATHY
     Dosage: 900 MILLIGRAM, EVERY 0.33 DAYS
     Dates: start: 20200106
  8. MOVICOL [Concomitant]
     Active Substance: POLYETHYLENE GLYCOL 3350\POTASSIUM CHLORIDE\SODIUM BICARBONATE\SODIUM CHLORIDE
     Indication: PROPHYLAXIS
     Dosage: 3 SACHETS
     Dates: start: 20200204
  9. CLOPIDOGREL [Concomitant]
     Active Substance: CLOPIDOGREL BISULFATE
     Dosage: UNK, QD
     Dates: start: 20200728, end: 20200901
  10. DIAZEPAM. [Concomitant]
     Active Substance: DIAZEPAM
     Indication: FIBROMYALGIA
     Dosage: 5 MILLIGRAM, QD
     Dates: start: 20191229
  11. OXYCODONE [Concomitant]
     Active Substance: OXYCODONE
     Indication: BACK PAIN
     Dosage: UNK, BID
     Dates: start: 20191229, end: 202004
  12. DEXAMETHASONE. [Concomitant]
     Active Substance: DEXAMETHASONE
     Dosage: 10 MILLIGRAM
     Dates: start: 20200504, end: 20200504
  13. NETUPITANT [Concomitant]
     Active Substance: NETUPITANT
     Dosage: 300 MILLIGRAM
     Dates: start: 20200317, end: 20200317
  14. ATEZOLIZUMAB. [Suspect]
     Active Substance: ATEZOLIZUMAB
     Dosage: 1200 MILLIGRAM, Q3W
     Route: 041
     Dates: start: 20200609
  15. ULTIBRO BREEZHALER [Concomitant]
     Active Substance: GLYCOPYRRONIUM\INDACATEROL
     Indication: CHRONIC OBSTRUCTIVE PULMONARY DISEASE
     Dosage: 85/43
     Dates: start: 20150118
  16. OXYCONTIN [Concomitant]
     Active Substance: OXYCODONE HYDROCHLORIDE
     Dosage: UNK
     Dates: start: 20200609
  17. ETOPOSIDE. [Suspect]
     Active Substance: ETOPOSIDE
     Indication: SMALL CELL LUNG CANCER
  18. CARBOPLATIN. [Suspect]
     Active Substance: CARBOPLATIN
     Indication: SMALL CELL LUNG CANCER
  19. ACETYLCYSTEINE. [Concomitant]
     Active Substance: ACETYLCYSTEINE
     Indication: CHRONIC OBSTRUCTIVE PULMONARY DISEASE
     Dosage: 600 MILLIGRAM, QD
     Dates: start: 2010
  20. TRAZODONE [Concomitant]
     Active Substance: TRAZODONE HYDROCHLORIDE
     Indication: FIBROMYALGIA
     Dosage: 100 MILLIGRAM, QD
     Dates: start: 20191229
  21. QVAR [Concomitant]
     Active Substance: BECLOMETHASONE DIPROPIONATE
     Indication: CHRONIC OBSTRUCTIVE PULMONARY DISEASE
     Dosage: 75 MILLIGRAM, BID
     Dates: start: 20141218
  22. DEXAMETHASONE. [Concomitant]
     Active Substance: DEXAMETHASONE
     Dosage: 10 MILLIGRAM
     Dates: start: 20200317, end: 20200317
  23. PANTOMED                           /01263204/ [Concomitant]
     Active Substance: PANTOPRAZOLE SODIUM
     Indication: GASTROOESOPHAGEAL REFLUX DISEASE
     Dosage: 40 MILLIGRAM, QD
     Dates: start: 20180615
  24. NETUPITANT [Concomitant]
     Active Substance: NETUPITANT
     Dosage: 300 MILLIGRAM
     Dates: start: 20200406, end: 20200406
  25. ETOPOSIDE. [Suspect]
     Active Substance: ETOPOSIDE
     Indication: NON-SMALL CELL LUNG CANCER
     Dosage: UNK
     Route: 065
     Dates: start: 20200317
  26. ETOPOSIDE. [Suspect]
     Active Substance: ETOPOSIDE
     Indication: TRANSITIONAL CELL CARCINOMA
  27. ATEZOLIZUMAB. [Suspect]
     Active Substance: ATEZOLIZUMAB
     Dosage: SUBSEQUENT INFUSION ON 17/MAR/2020 DATE OF MOST RECENT DOSE: 06/APR/2020
     Route: 041
     Dates: start: 20200630
  28. ATEZOLIZUMAB. [Suspect]
     Active Substance: ATEZOLIZUMAB
     Dosage: SUBSEQUENT INFUSION ON 17/MAR/2020
     Route: 041
     Dates: start: 20200901
  29. OXYNORM [Concomitant]
     Active Substance: OXYCODONE HYDROCHLORIDE
     Indication: BACK PAIN
     Dosage: 10 MILLIGRAM
     Dates: start: 20191229
  30. DOMINAL                            /00002701/ [Concomitant]
     Active Substance: ASPIRIN
     Indication: DEPRESSION
     Dosage: 80 MILLIGRAM, QD
     Dates: start: 20191229
  31. ZOLPIDEM [Concomitant]
     Active Substance: ZOLPIDEM TARTRATE
     Indication: DEPRESSION
     Dosage: 10 MILLIGRAM, QD
     Dates: start: 20191212
  32. BELSAR                             /01635402/ [Concomitant]
     Active Substance: OLMESARTAN MEDOXOMIL
     Indication: HYPERTENSION
     Dosage: 20 MILLIGRAM, QD
     Dates: start: 2010
  33. LAXOBERON [Concomitant]
     Active Substance: SODIUM PICOSULFATE
     Dosage: UNK
     Dates: start: 20200728
  34. CARBOPLATIN. [Suspect]
     Active Substance: CARBOPLATIN
     Indication: TRANSITIONAL CELL CARCINOMA
  35. LITICAN                            /00690802/ [Concomitant]
     Active Substance: ALIZAPRIDE HYDROCHLORIDE
     Indication: PROPHYLAXIS
     Dosage: 50 MILLIGRAM
     Dates: start: 20200408
  36. PALONOSETRON. [Concomitant]
     Active Substance: PALONOSETRON HYDROCHLORIDE
     Dosage: 0.5 MILLIGRAM
     Dates: start: 20200317, end: 20200317
  37. NETUPITANT [Concomitant]
     Active Substance: NETUPITANT
     Dosage: 300 MILLIGRAM
     Dates: start: 20200504, end: 20200504
  38. ATEZOLIZUMAB. [Suspect]
     Active Substance: ATEZOLIZUMAB
     Indication: TRANSITIONAL CELL CARCINOMA
     Dosage: SUBSEQUENT INFUSION ON 17/MAR/2020, DATE OF MOST RECENT DOSE: 06/APR/2020
     Route: 041
     Dates: start: 20200217
  39. ATEZOLIZUMAB. [Suspect]
     Active Substance: ATEZOLIZUMAB
     Indication: SMALL CELL LUNG CANCER EXTENSIVE STAGE
     Dosage: 1200 MILLIGRAM, Q3W
     Route: 041
     Dates: start: 20200504
  40. PALONOSETRON. [Concomitant]
     Active Substance: PALONOSETRON HYDROCHLORIDE
     Dosage: 0.5 MILLIGRAM
     Dates: start: 20200504, end: 20200504
  41. DEXAMETHASONE. [Concomitant]
     Active Substance: DEXAMETHASONE
     Dosage: 10 MILLIGRAM
     Dates: start: 20200406, end: 20200406
  42. LYRICA [Concomitant]
     Active Substance: PREGABALIN
     Indication: POLYNEUROPATHY
     Dosage: 225 MILLIGRAM, BID
     Dates: start: 20200204
  43. CYMBALTA [Concomitant]
     Active Substance: DULOXETINE HYDROCHLORIDE
     Indication: DEPRESSION
     Dosage: 10 MILLIGRAM, QD
     Dates: start: 20191212

REACTIONS (16)
  - Hyperthyroidism [Not Recovered/Not Resolved]
  - Alanine aminotransferase increased [Not Recovered/Not Resolved]
  - Headache [Not Recovered/Not Resolved]
  - Blood lactate dehydrogenase increased [Not Recovered/Not Resolved]
  - Aspartate aminotransferase increased [Not Recovered/Not Resolved]
  - Dyspnoea [Not Recovered/Not Resolved]
  - Hypomagnesaemia [Not Recovered/Not Resolved]
  - General physical health deterioration [Recovered/Resolved]
  - Hypoproteinaemia [Not Recovered/Not Resolved]
  - Neutropenia [Not Recovered/Not Resolved]
  - Excessive eye blinking [Not Recovered/Not Resolved]
  - Lymphocyte count decreased [Recovered/Resolved]
  - Confusional state [Recovered/Resolved]
  - Thrombocytopenia [Recovered/Resolved]
  - Postural tremor [Not Recovered/Not Resolved]
  - Anaemia [Not Recovered/Not Resolved]

NARRATIVE: CASE EVENT DATE: 20200309
